FAERS Safety Report 26139209 (Version 1)
Quarter: 2025Q4

REPORT INFORMATION
  Report Type: Spontaneous
  Country: AU (occurrence: EU)
  Receive Date: 20251210
  Receipt Date: 20251210
  Transmission Date: 20260117
  Serious: Yes (Other)
  Sender: AUROBINDO
  Company Number: AU-AUROBINDO-AUR-APL-2025-061401

PATIENT
  Age: 73 Year
  Sex: Female

DRUGS (4)
  1. CARBOPLATIN [Suspect]
     Active Substance: CARBOPLATIN
     Indication: Product used for unknown indication
     Dosage: UNK
     Route: 065
  2. PEMETREXED [Suspect]
     Active Substance: PEMETREXED
     Indication: Product used for unknown indication
     Dosage: UNK
  3. NIVOLUMAB [Suspect]
     Active Substance: NIVOLUMAB
     Indication: Product used for unknown indication
     Dosage: UNK
     Route: 065
  4. PACLITAXEL [Suspect]
     Active Substance: PACLITAXEL
     Indication: Product used for unknown indication
     Dosage: UNK
     Route: 065

REACTIONS (3)
  - Acute kidney injury [Unknown]
  - Non-small cell lung cancer [Unknown]
  - Dysphagia [Unknown]
